FAERS Safety Report 6429265-1 (Version None)
Quarter: 2009Q4

REPORT INFORMATION
  Report Type: 
  Country: None (occurrence: None)
  Receive Date: 20091105
  Receipt Date: 20091026
  Transmission Date: 20100525
  Serious: Yes (Other)
  Sender: FDA-Public Use
  Company Number: PHHY2009IE30095

PATIENT
  Sex: Female

DRUGS (2)
  1. CLOZARIL [Suspect]
     Indication: SCHIZOPHRENIA
     Dosage: 25 MG DAILY
     Route: 048
     Dates: start: 20090706
  2. CLOZARIL [Suspect]
     Dosage: UNK
     Dates: start: 20090717

REACTIONS (6)
  - BLISTER [None]
  - DERMATOSIS [None]
  - NEUTROPHIL COUNT INCREASED [None]
  - RASH [None]
  - RED BLOOD CELL COUNT INCREASED [None]
  - WHITE BLOOD CELL COUNT INCREASED [None]
